FAERS Safety Report 9580726 (Version 2)
Quarter: 2014Q1

REPORT INFORMATION
  Report Type: Report from Study
  Country: US (occurrence: US)
  Receive Date: 20131002
  Receipt Date: 20140307
  Transmission Date: 20141002
  Serious: Yes (Death, Hospitalization, Other)
  Sender: FDA-Public Use
  Company Number: US-ABBVIE-13P-163-1153253-00

PATIENT
  Age: 92 Year
  Sex: Male
  Weight: 64.92 kg

DRUGS (4)
  1. LUPRON DEPOT [Suspect]
     Indication: PROSTATE CANCER
     Dates: start: 2009, end: 201306
  2. LUPRON DEPOT [Suspect]
     Indication: BONE CANCER
  3. PEPCID [Concomitant]
     Indication: PRODUCT USED FOR UNKNOWN INDICATION
     Dates: end: 201308
  4. METOPROLOL [Concomitant]
     Indication: PRODUCT USED FOR UNKNOWN INDICATION
     Dates: end: 201308

REACTIONS (5)
  - Death [Fatal]
  - Sepsis [Unknown]
  - Gangrene [Unknown]
  - Sepsis [Unknown]
  - Metastases to bone [Unknown]
